FAERS Safety Report 9306176 (Version 1)
Quarter: 2013Q2

REPORT INFORMATION
  Report Type: Spontaneous
  Country: US (occurrence: US)
  Receive Date: 20130523
  Receipt Date: 20130523
  Transmission Date: 20140414
  Serious: Yes (Hospitalization)
  Sender: FDA-Public Use
  Company Number: US-GLAXOSMITHKLINE-A1023721A

PATIENT
  Sex: Female

DRUGS (3)
  1. COREG [Suspect]
     Indication: DYSPNOEA
     Dosage: 1TAB TWICE PER DAY
     Route: 048
     Dates: end: 20130515
  2. ALBUTEROL [Concomitant]
  3. ADVAIR [Concomitant]

REACTIONS (9)
  - Dyspnoea [Not Recovered/Not Resolved]
  - Dizziness [Not Recovered/Not Resolved]
  - Blood pressure fluctuation [Not Recovered/Not Resolved]
  - Blood glucose fluctuation [Not Recovered/Not Resolved]
  - Tympanic membrane perforation [Not Recovered/Not Resolved]
  - Fall [Not Recovered/Not Resolved]
  - Hypoxia [Not Recovered/Not Resolved]
  - Deafness [Not Recovered/Not Resolved]
  - Drug administration error [Unknown]
